FAERS Safety Report 6244881-8 (Version None)
Quarter: 2009Q2

REPORT INFORMATION
  Report Type: 
  Country: None (occurrence: None)
  Receive Date: 20090625
  Receipt Date: 20090618
  Transmission Date: 20091009
  Serious: Yes (Life-Threatening, Hospitalization, Other)
  Sender: FDA-Public Use
  Company Number: B0577382A

PATIENT
  Sex: Female
  Weight: 90 kg

DRUGS (2)
  1. ARIXTRA [Suspect]
     Indication: THROMBOSIS PROPHYLAXIS
     Dosage: 2.5MG UNKNOWN
     Route: 058
     Dates: start: 20090416, end: 20090417
  2. ASPEGIC 1000 [Concomitant]
     Indication: THROMBOSIS PROPHYLAXIS
     Dosage: 1G SINGLE DOSE
     Route: 042
     Dates: start: 20090416, end: 20090416

REACTIONS (2)
  - DEEP VEIN THROMBOSIS [None]
  - DRUG INEFFECTIVE [None]
